FAERS Safety Report 9831715 (Version 2)
Quarter: 2014Q1

REPORT INFORMATION
  Report Type: Spontaneous
  Country: JP (occurrence: JP)
  Receive Date: 20140121
  Receipt Date: 20140122
  Transmission Date: 20141002
  Serious: Yes (Other)
  Sender: FDA-Public Use
  Company Number: JP-TEVA-454912ISR

PATIENT
  Age: 73 Year
  Sex: Male

DRUGS (3)
  1. CARBOPLATIN [Suspect]
     Indication: LUNG NEOPLASM MALIGNANT
     Dosage: AUC = 5
     Route: 065
     Dates: start: 201006
  2. PACLITAXEL [Suspect]
     Indication: LUNG NEOPLASM MALIGNANT
     Dosage: 200 MG/M2 DAILY;
     Route: 065
     Dates: start: 201006
  3. DOCETAXEL [Suspect]
     Indication: LUNG NEOPLASM MALIGNANT
     Dosage: 60 MG/M2 DAILY; EVERY 3-4W
     Route: 065

REACTIONS (3)
  - Bone marrow failure [Unknown]
  - Arthralgia [Unknown]
  - Myalgia [Unknown]
